FAERS Safety Report 22222489 (Version 1)
Quarter: 2023Q2

REPORT INFORMATION
  Report Type: Spontaneous
  Country: US (occurrence: None)
  Receive Date: 20230417
  Receipt Date: 20230417
  Transmission Date: 20230722
  Serious: Yes (Other)
  Sender: FDA-Public Use
  Company Number: None

PATIENT
  Age: 78 Year
  Sex: Female
  Weight: 56.25 kg

DRUGS (5)
  1. COUGH DM [Suspect]
     Active Substance: DEXTROMETHORPHAN HYDROBROMIDE
     Indication: Cough
     Dosage: OTHER QUANTITY : 10 TOOK 5 ML NEXT DAY;?FREQUENCY : DAILY;?
     Route: 048
     Dates: start: 20230413, end: 20230414
  2. AMLODIPINE BESYLATE [Concomitant]
     Active Substance: AMLODIPINE BESYLATE
  3. Candasartan 4mg [Concomitant]
  4. ASPIRIN [Concomitant]
     Active Substance: ASPIRIN
  5. Tylenol Dissolve [Concomitant]

REACTIONS (3)
  - Feeling abnormal [None]
  - Asthenia [None]
  - Diarrhoea [None]

NARRATIVE: CASE EVENT DATE: 20230414
